FAERS Safety Report 6736072-9 (Version None)
Quarter: 2010Q2

REPORT INFORMATION
  Report Type: 
  Country: None (occurrence: None)
  Receive Date: 20100521
  Receipt Date: 20100511
  Transmission Date: 20101027
  Serious: Yes (Hospitalization, Other)
  Sender: FDA-Public Use
  Company Number: FR-PFIZER INC-2010061720

PATIENT
  Age: 64 Year
  Sex: Male

DRUGS (7)
  1. ATARAX [Suspect]
     Dosage: 25 MG, DAILY
     Route: 048
     Dates: start: 20100211, end: 20100304
  2. EUPRESSYL [Suspect]
     Dosage: 60 MG, DAILY
     Route: 048
     Dates: start: 20100210, end: 20100304
  3. LEXOMIL [Suspect]
     Dosage: UNK
     Route: 048
     Dates: start: 20100209, end: 20100304
  4. COVERSYL [Suspect]
     Dosage: 2.5 MG, DAILY
     Route: 048
     Dates: start: 20100216, end: 20100304
  5. TIAPRIDAL [Suspect]
     Dosage: UNK
     Route: 048
     Dates: start: 20100219, end: 20100304
  6. TOPALGIC [Suspect]
     Dosage: 150 MG, DAILY
     Route: 048
     Dates: start: 20100218, end: 20100224
  7. AUGMENTIN '125' [Concomitant]
     Dosage: UNK
     Route: 048
     Dates: start: 20100225

REACTIONS (1)
  - VASCULAR PURPURA [None]
